FAERS Safety Report 6377128-2 (Version None)
Quarter: 2009Q3

REPORT INFORMATION
  Report Type: 
  Country: None (occurrence: None)
  Receive Date: 20090923
  Receipt Date: 20090923
  Transmission Date: 20100115
  Serious: No
  Sender: FDA-Public Use
  Company Number: None

PATIENT

DRUGS (1)
  1. YASMIN [Suspect]
     Dosage: 28 TABLETS BOX

REACTIONS (7)
  - ABDOMINAL RIGIDITY [None]
  - DYSPEPSIA [None]
  - MENORRHAGIA [None]
  - MIGRAINE [None]
  - MOOD SWINGS [None]
  - PROTEIN URINE PRESENT [None]
  - THROMBOSIS [None]
